FAERS Safety Report 6110707-6 (Version None)
Quarter: 2009Q1

REPORT INFORMATION
  Report Type: 
  Country: None (occurrence: None)
  Receive Date: 20090309
  Receipt Date: 20090302
  Transmission Date: 20090719
  Serious: Yes (Other)
  Sender: FDA-Public Use
  Company Number: 97450

PATIENT
  Age: 41 Year
  Sex: Female
  Weight: 97.977 kg

DRUGS (1)
  1. IBUPROFEN   200MG/PERRIGO COMPANY [Suspect]
     Indication: HEADACHE
     Dosage: 2 TABLETS/3-4X WEEKLY/ORAL
     Route: 048
     Dates: start: 20070601, end: 20080917

REACTIONS (5)
  - DRUG EXPOSURE DURING PREGNANCY [None]
  - FOETAL DISORDER [None]
  - HEAD CIRCUMFERENCE ABNORMAL [None]
  - ULTRASOUND SCAN ABNORMAL [None]
  - WEIGHT INCREASED [None]
